FAERS Safety Report 11936090 (Version 3)
Quarter: 2016Q1

REPORT INFORMATION
  Report Type: Report from Study
  Country: US (occurrence: US)
  Receive Date: 20160121
  Receipt Date: 20160330
  Transmission Date: 20160526
  Serious: Yes (Hospitalization, Other)
  Sender: FDA-Public Use
  Company Number: US-AMGEN-USASL2015133135

PATIENT
  Age: 71 Year
  Sex: Male

DRUGS (3)
  1. DEXAMETHASONE. [Suspect]
     Active Substance: DEXAMETHASONE
     Indication: PRODUCT USED FOR UNKNOWN INDICATION
     Dosage: 4 MG, TOOK 10 TABLETS AT 4MG /HE TAKES 20 ON ONE DAY AND 20 THE NEXT
     Route: 065
  2. KYPROLIS [Suspect]
     Active Substance: CARFILZOMIB
     Dosage: UNK
     Route: 065
     Dates: start: 20160225, end: 201603
  3. KYPROLIS [Suspect]
     Active Substance: CARFILZOMIB
     Indication: PRODUCT USED FOR UNKNOWN INDICATION
     Dosage: UNK
     Route: 065

REACTIONS (7)
  - Blood glucose increased [Unknown]
  - Clostridium difficile infection [Recovered/Resolved]
  - Rehabilitation therapy [Unknown]
  - Night sweats [Unknown]
  - Pneumonia [Recovered/Resolved]
  - Asthenia [Unknown]
  - Walking aid user [Unknown]

NARRATIVE: CASE EVENT DATE: 201601
